FAERS Safety Report 7242755-7 (Version None)
Quarter: 2011Q1

REPORT INFORMATION
  Report Type: 
  Country: None (occurrence: None)
  Receive Date: 20110125
  Receipt Date: 20110114
  Transmission Date: 20110831
  Serious: Yes (Death)
  Sender: FDA-Public Use
  Company Number: IE-AMGEN-IRLSP2010008928

PATIENT
  Age: 61 Year
  Sex: Female

DRUGS (8)
  1. LANOXIN [Concomitant]
  2. FLUCILLIN [Concomitant]
  3. RAMILO [Concomitant]
  4. ZANIDIP [Concomitant]
  5. LASIX [Concomitant]
  6. PANTUP [Concomitant]
  7. LIPITOR [Concomitant]
  8. ARANESP [Suspect]
     Indication: RENAL FAILURE CHRONIC
     Dosage: 40 MG, Q2WK
     Route: 058
     Dates: start: 20101201, end: 20101201

REACTIONS (1)
  - DEATH [None]
